FAERS Safety Report 9503347 (Version 13)
Quarter: 2015Q3

REPORT INFORMATION
  Report Type: Report from Study
  Country: CA (occurrence: CA)
  Receive Date: 20130906
  Receipt Date: 20150901
  Transmission Date: 20151125
  Serious: Yes (Other)
  Sender: FDA-Public Use
  Company Number: CA-ROCHE-1270556

PATIENT
  Age: 40 Year
  Sex: Female
  Weight: 93 kg

DRUGS (10)
  1. ACETAMINOPHEN. [Concomitant]
     Active Substance: ACETAMINOPHEN
     Route: 048
     Dates: start: 20120528, end: 20140605
  2. ACTEMRA [Suspect]
     Active Substance: TOCILIZUMAB
     Indication: RHEUMATOID ARTHRITIS
     Dosage: LAST DOSE ON 05/JUN/2015
     Route: 058
     Dates: start: 20141212
  3. METHOTREXATE [Concomitant]
     Active Substance: METHOTREXATE
     Route: 065
  4. PARIET [Concomitant]
     Active Substance: RABEPRAZOLE SODIUM
  5. DIPHENHYDRAMINE HCL [Concomitant]
     Active Substance: DIPHENHYDRAMINE HYDROCHLORIDE
     Indication: PREMEDICATION
     Route: 048
     Dates: start: 20090715, end: 20140605
  6. ACETAMINOPHEN. [Concomitant]
     Active Substance: ACETAMINOPHEN
     Indication: PREMEDICATION
     Route: 048
     Dates: start: 20090715
  7. RITUXAN [Suspect]
     Active Substance: RITUXIMAB
     Route: 042
     Dates: end: 20130121
  8. METHYLPREDNISOLONE. [Concomitant]
     Active Substance: METHYLPREDNISOLONE
     Indication: PREMEDICATION
     Route: 042
     Dates: start: 20090615, end: 20140605
  9. GABAPENTIN. [Concomitant]
     Active Substance: GABAPENTIN
  10. RITUXAN [Suspect]
     Active Substance: RITUXIMAB
     Indication: RHEUMATOID ARTHRITIS
     Route: 042
     Dates: start: 20080115, end: 20140605

REACTIONS (22)
  - Headache [Recovered/Resolved]
  - Insomnia [Recovering/Resolving]
  - Skin burning sensation [Unknown]
  - Pharyngitis [Recovering/Resolving]
  - Infection [Recovering/Resolving]
  - Choking sensation [Unknown]
  - Palpitations [Recovering/Resolving]
  - Heart rate increased [Unknown]
  - Injection site erythema [Unknown]
  - Malaise [Unknown]
  - Angioedema [Unknown]
  - Cellulitis pharyngeal [Unknown]
  - Swelling [Unknown]
  - Injection site pruritus [Unknown]
  - Tympanic membrane perforation [Not Recovered/Not Resolved]
  - Infusion related reaction [Recovered/Resolved]
  - Muscle spasms [Recovered/Resolved]
  - Rash [Unknown]
  - Paranoia [Recovering/Resolving]
  - Nausea [Recovered/Resolved]
  - Insomnia [Recovering/Resolving]
  - Pain [Recovered/Resolved]

NARRATIVE: CASE EVENT DATE: 2013
